FAERS Safety Report 25613415 (Version 1)
Quarter: 2025Q3

REPORT INFORMATION
  Report Type: Spontaneous
  Country: US (occurrence: None)
  Receive Date: 20250728
  Receipt Date: 20250728
  Transmission Date: 20251021
  Serious: Yes (Disabling)
  Sender: FDA-CTU
  Company Number: None

PATIENT
  Age: 71 Year
  Sex: Female
  Weight: 78.75 kg

DRUGS (1)
  1. PROLIA [Suspect]
     Active Substance: DENOSUMAB
     Indication: Osteopenia

REACTIONS (6)
  - Fatigue [None]
  - Pain in extremity [None]
  - Neuropathy peripheral [None]
  - Muscle spasms [None]
  - Dysstasia [None]
  - Bedridden [None]

NARRATIVE: CASE EVENT DATE: 20250601
